FAERS Safety Report 16112845 (Version 1)
Quarter: 2019Q1

REPORT INFORMATION
  Report Type: Report from Study
  Country: GB (occurrence: GB)
  Receive Date: 20190325
  Receipt Date: 20190325
  Transmission Date: 20190418
  Serious: Yes (Other)
  Sender: FDA-Public Use
  Company Number: PHHY2018GB191433

PATIENT
  Sex: Male

DRUGS (1)
  1. ERELZI [Suspect]
     Active Substance: ETANERCEPT-SZZS
     Indication: RHEUMATOID ARTHRITIS
     Dosage: 50 MG, QW (PREFILLED PEN)
     Route: 058
     Dates: start: 20181210

REACTIONS (7)
  - Ill-defined disorder [Unknown]
  - Cough [Unknown]
  - Feeling cold [Unknown]
  - Vision blurred [Unknown]
  - Nasopharyngitis [Unknown]
  - Asthenia [Unknown]
  - Viral infection [Unknown]
